FAERS Safety Report 5645768-1 (Version None)
Quarter: 2008Q1

REPORT INFORMATION
  Report Type: 
  Country: None (occurrence: None)
  Receive Date: 20080229
  Receipt Date: 20080218
  Transmission Date: 20080703
  Serious: Yes (Hospitalization)
  Sender: FDA-Public Use
  Company Number: GB-GENENTECH-256686

PATIENT
  Sex: Female
  Weight: 95 kg

DRUGS (3)
  1. BEVACIZUMAB [Suspect]
     Indication: OVARIAN EPITHELIAL CANCER
     Dosage: 700 MG, Q3W
     Route: 042
     Dates: start: 20080122
  2. CARBOPLATIN [Suspect]
     Indication: OVARIAN EPITHELIAL CANCER
     Dosage: 880 MG, UNK
     Route: 042
     Dates: start: 20080122
  3. PACLITAXEL [Suspect]
     Indication: OVARIAN EPITHELIAL CANCER
     Dosage: 348 MG, UNK
     Route: 042
     Dates: start: 20080122

REACTIONS (1)
  - ARTHRALGIA [None]
